FAERS Safety Report 5053746-9 (Version None)
Quarter: 2006Q3

REPORT INFORMATION
  Report Type: 
  Country: None (occurrence: None)
  Receive Date: 20060718
  Receipt Date: 20060629
  Transmission Date: 20061208
  Serious: No
  Sender: FDA-Public Use
  Company Number: 2006AP03050

PATIENT
  Age: 68 Year
  Sex: Male
  Weight: 71 kg

DRUGS (6)
  1. XYLOCAINE TOPICAL FILM [Suspect]
     Indication: LOCAL ANAESTHESIA
     Route: 045
     Dates: start: 20060627, end: 20060627
  2. PRIVINA [Suspect]
     Indication: ENDOSCOPY UPPER GASTROINTESTINAL TRACT
     Route: 045
     Dates: start: 20060627, end: 20060627
  3. JELLIED LUBRICANT [Suspect]
     Indication: ENDOSCOPY UPPER GASTROINTESTINAL TRACT
     Route: 045
     Dates: start: 20060627, end: 20060627
  4. XYLOCAINE [Concomitant]
     Indication: LOCAL ANAESTHESIA
     Route: 045
     Dates: start: 20060627, end: 20060627
  5. XYLOCAINE [Concomitant]
     Route: 049
     Dates: start: 20060628, end: 20060628
  6. ALLOPURINOL [Concomitant]

REACTIONS (6)
  - DRUG HYPERSENSITIVITY [None]
  - DYSPNOEA [None]
  - PROCEDURAL COMPLICATION [None]
  - PROCEDURAL PAIN [None]
  - REACTION TO DRUG EXCIPIENTS [None]
  - SOMNOLENCE [None]
